FAERS Safety Report 10743709 (Version 2)
Quarter: 2015Q4

REPORT INFORMATION
  Report Type: Spontaneous
  Country: JP (occurrence: JP)
  Receive Date: 20150128
  Receipt Date: 20151216
  Transmission Date: 20160304
  Serious: Yes (Death, Hospitalization, Other)
  Sender: FDA-Public Use
  Company Number: JP-ROCHE-1526908

PATIENT
  Age: 57 Year
  Sex: Female
  Weight: 50 kg

DRUGS (8)
  1. METHOTREXATE [Concomitant]
     Active Substance: METHOTREXATE
     Dosage: FRACTIONATION DOSE UNCERTAIN FREQUENCY AND DOSE INTERVAL UNCERTAINTY
     Route: 065
     Dates: start: 20141110, end: 20150108
  2. METHOTREXATE [Concomitant]
     Active Substance: METHOTREXATE
     Dosage: FRACTIONATION DOSE UNCERTAIN FREQUENCY AND DOSE INTERVAL UNCERTAINTY
     Route: 065
     Dates: start: 20150109, end: 20150209
  3. ACTEMRA [Suspect]
     Active Substance: TOCILIZUMAB
     Indication: RHEUMATOID ARTHRITIS
     Dosage: DOSAGE IS UNCERTAIN.
     Route: 041
     Dates: start: 20140205, end: 20140801
  4. PREDNISOLONE. [Concomitant]
     Active Substance: PREDNISOLONE
     Indication: RHEUMATOID ARTHRITIS
     Dosage: FRACTIONATION DOSE UNCERTAIN FREQUENCY AND DOSE INTERVAL UNCERTAINTY
     Route: 065
     Dates: start: 20120213, end: 20140607
  5. METHOTREXATE [Concomitant]
     Active Substance: METHOTREXATE
     Indication: RHEUMATOID ARTHRITIS
     Dosage: FRACTIONATION DOSE UNCERTAIN FREQUENCY AND DOSE INTERVAL UNCERTAINTY
     Route: 065
     Dates: start: 20120217, end: 20141109
  6. LYRICA [Concomitant]
     Active Substance: PREGABALIN
     Indication: RHEUMATOID ARTHRITIS
     Dosage: AMOUNT OF 1 ONCE ADMINISTRATION: 25 (UNIT UNCERTAINTY)
     Route: 048
     Dates: start: 20140128, end: 20150210
  7. URSODEOXYCHOLIC ACID [Concomitant]
     Active Substance: URSODIOL
     Indication: AMYLOIDOSIS
     Dosage: AMOUNT OF 1 ONCE ADMINISTRATION: 300 (UNIT UNCERTAINTY)
     Route: 048
     Dates: start: 20120213, end: 20150210
  8. ACTEMRA [Suspect]
     Active Substance: TOCILIZUMAB
     Indication: RHEUMATOID ARTHRITIS
     Route: 041
     Dates: start: 20141022, end: 20150120

REACTIONS (5)
  - Lymphoma [Unknown]
  - Rheumatoid arthritis [Not Recovered/Not Resolved]
  - Disseminated intravascular coagulation [Unknown]
  - Multi-organ failure [Unknown]
  - Wound infection [Fatal]

NARRATIVE: CASE EVENT DATE: 20141226
